FAERS Safety Report 24670694 (Version 1)
Quarter: 2024Q4

REPORT INFORMATION
  Report Type: Spontaneous
  Country: GB (occurrence: GB)
  Receive Date: 20241127
  Receipt Date: 20241127
  Transmission Date: 20250115
  Serious: Yes (Hospitalization, Disabling, Other)
  Sender: SANDOZ
  Company Number: GB-SANDOZ-SDZ2024GB097409

PATIENT
  Age: 41 Year
  Sex: Female
  Weight: 46.72 kg

DRUGS (1)
  1. TYRUKO [Suspect]
     Active Substance: NATALIZUMAB-SZTN
     Indication: Multiple sclerosis
     Dosage: 300 MG EVERY 28 DAYS
     Route: 042
     Dates: start: 20240520, end: 20240809

REACTIONS (2)
  - Multiple sclerosis relapse [Recovering/Resolving]
  - Rash vesicular [Unknown]

NARRATIVE: CASE EVENT DATE: 20240520
